FAERS Safety Report 15280411 (Version 2)
Quarter: 2018Q3

REPORT INFORMATION
  Report Type: Spontaneous
  Country: JP (occurrence: JP)
  Receive Date: 20180815
  Receipt Date: 20180914
  Transmission Date: 20181010
  Serious: Yes (Hospitalization, Other)
  Sender: FDA-Public Use
  Company Number: JP-GLAXOSMITHKLINE-JP2018JPN139064

PATIENT
  Age: 74 Year
  Sex: Male

DRUGS (12)
  1. MUCOSTA [Concomitant]
     Active Substance: REBAMIPIDE
     Dosage: UNK
  2. KIKLIN [Concomitant]
     Active Substance: BIXALOMER
     Dosage: UNK
  3. DEPAS (ETIZOLAM) [Concomitant]
     Dosage: UNK
  4. ADALAT [Concomitant]
     Active Substance: NIFEDIPINE
     Dosage: UNK
  5. PLETAAL [Concomitant]
     Active Substance: CILOSTAZOL
     Indication: THROMBOSIS PROPHYLAXIS
     Dosage: 200 MG, 1D
  6. ARTIST [Concomitant]
     Active Substance: CARVEDILOL
     Dosage: UNK
  7. PRECIPITATED CALCIUM CARBONATE [Concomitant]
     Active Substance: CALCIUM CARBONATE
     Dosage: UNK
  8. PURSENNID [Concomitant]
     Active Substance: SENNOSIDES A AND B
     Dosage: UNK
  9. VALTREX [Suspect]
     Active Substance: VALACYCLOVIR HYDROCHLORIDE
     Indication: HERPES ZOSTER
     Dosage: 1500 MG, 1D
     Route: 048
     Dates: start: 20180731, end: 20180731
  10. TAKEPRON [Concomitant]
     Active Substance: LANSOPRAZOLE
     Dosage: UNK
  11. OLMETEC [Concomitant]
     Active Substance: OLMESARTAN MEDOXOMIL
     Dosage: UNK
  12. LENDORMIN [Concomitant]
     Active Substance: BROTIZOLAM
     Dosage: UNK

REACTIONS (7)
  - Prescribed overdose [Unknown]
  - Dysarthria [Recovering/Resolving]
  - Muscular weakness [Recovering/Resolving]
  - Gait disturbance [Recovering/Resolving]
  - Dizziness [Recovering/Resolving]
  - Product use issue [Unknown]
  - Toxic encephalopathy [Recovering/Resolving]

NARRATIVE: CASE EVENT DATE: 20180731
